FAERS Safety Report 8688028 (Version 3)
Quarter: 2017Q4

REPORT INFORMATION
  Report Type: Spontaneous
  Country: US (occurrence: US)
  Receive Date: 20120727
  Receipt Date: 20171005
  Transmission Date: 20180321
  Serious: Yes (Hospitalization, Other)
  Sender: FDA-Public Use
  Company Number: US-ROCHE-1089601

PATIENT
  Age: 65 Year
  Sex: Female

DRUGS (10)
  1. BONIVA [Suspect]
     Active Substance: IBANDRONATE SODIUM
     Indication: OSTEOPOROSIS
  2. FOSAMAX [Suspect]
     Active Substance: ALENDRONATE SODIUM
     Indication: OSTEOPOROSIS
     Route: 048
     Dates: start: 199609
  3. FOSAMAX [Suspect]
     Active Substance: ALENDRONATE SODIUM
     Indication: OSTEITIS DEFORMANS
     Route: 048
     Dates: start: 200305, end: 200409
  4. BONIVA [Suspect]
     Active Substance: IBANDRONATE SODIUM
     Indication: OSTEITIS DEFORMANS
  5. BONIVA [Suspect]
     Active Substance: IBANDRONATE SODIUM
     Indication: OSTEOPOROSIS
     Route: 048
     Dates: start: 200605, end: 200807
  6. FORTEO [Suspect]
     Active Substance: TERIPARATIDE
     Route: 058
     Dates: start: 201009, end: 201109
  7. FOSAMAX [Suspect]
     Active Substance: ALENDRONATE SODIUM
     Route: 048
     Dates: start: 20080729, end: 200910
  8. RECLAST [Suspect]
     Active Substance: ZOLEDRONIC ACID
     Indication: OSTEOPOROSIS
     Route: 042
     Dates: start: 200910, end: 201010
  9. FOSAMAX [Suspect]
     Active Substance: ALENDRONATE SODIUM
     Indication: OSTEOPENIA
     Route: 048
     Dates: start: 1998, end: 200202
  10. FORTEO [Suspect]
     Active Substance: TERIPARATIDE
     Indication: OSTEOPOROSIS
     Dosage: 750 MCG/3ML
     Route: 058
     Dates: start: 200409, end: 200601

REACTIONS (9)
  - Anxiety [Unknown]
  - Lumbar vertebral fracture [Unknown]
  - Bone disorder [Unknown]
  - Low turnover osteopathy [Unknown]
  - Anxiety [Unknown]
  - Emotional distress [Unknown]
  - Nail dystrophy [Unknown]
  - Femur fracture [Unknown]
  - Stress fracture [Unknown]

NARRATIVE: CASE EVENT DATE: 20070521
